FAERS Safety Report 7884456-8 (Version None)
Quarter: 2011Q4

REPORT INFORMATION
  Report Type: 
  Country: None (occurrence: None)
  Receive Date: 20111102
  Receipt Date: 20111031
  Transmission Date: 20120403
  Serious: Yes (Death, Hospitalization, Other)
  Sender: FDA-Public Use
  Company Number: JP-ABBOTT-10P-087-0625142-00

PATIENT
  Sex: Male
  Weight: 57 kg

DRUGS (9)
  1. METHOTREXATE [Suspect]
     Indication: RHEUMATOID ARTHRITIS
     Route: 048
     Dates: start: 20090610, end: 20100205
  2. ADALIMUMAB [Suspect]
     Indication: RHEUMATOID ARTHRITIS
     Route: 058
     Dates: start: 20100106, end: 20100120
  3. ALENDRONATE SODIUM [Concomitant]
     Indication: OSTEOPOROSIS PROPHYLAXIS
     Route: 048
     Dates: start: 20090305
  4. PREDNISOLONE [Suspect]
     Indication: RHEUMATOID ARTHRITIS
     Route: 048
     Dates: start: 20090305, end: 20100208
  5. FOLIC ACID [Concomitant]
     Indication: FOLATE DEFICIENCY
  6. ALFACALCIDOL [Concomitant]
     Indication: OSTEOPOROSIS PROPHYLAXIS
     Route: 048
     Dates: start: 20090305
  7. TEPRENONE [Concomitant]
     Indication: PROPHYLAXIS
     Route: 048
     Dates: start: 20090305
  8. FOLIC ACID [Concomitant]
     Indication: PROPHYLAXIS
     Route: 048
     Dates: start: 20090305
  9. AMPIROXICAM [Concomitant]
     Indication: RHEUMATOID ARTHRITIS
     Route: 048
     Dates: start: 20090305

REACTIONS (11)
  - SICK SINUS SYNDROME [None]
  - HYPERKALAEMIA [None]
  - HYPOTENSION [None]
  - PNEUMONIA LEGIONELLA [None]
  - RENAL DISORDER [None]
  - SEPTIC SHOCK [None]
  - BLOOD BILIRUBIN INCREASED [None]
  - RASH [None]
  - CARDIO-RESPIRATORY ARREST [None]
  - HAEMOGLOBIN DECREASED [None]
  - PNEUMOTHORAX [None]
